FAERS Safety Report 17739846 (Version 1)
Quarter: 2020Q2

REPORT INFORMATION
  Report Type: Spontaneous
  Country: BR (occurrence: BR)
  Receive Date: 20200504
  Receipt Date: 20200504
  Transmission Date: 20200714
  Serious: Yes (Hospitalization, Other)
  Sender: FDA-Public Use
  Company Number: BR-TEVA-2020-BR-1229965

PATIENT
  Age: 63 Year
  Sex: Male
  Weight: 79 kg

DRUGS (7)
  1. DEXAMETHASONE. [Concomitant]
     Active Substance: DEXAMETHASONE
     Dosage: PRE-CHEMOTHERAPY DRUG
     Route: 042
  2. FAULDFLUOR [Concomitant]
     Active Substance: FLUOROURACIL
     Dosage: DILUTION: BOLUS IN 50 ML SALINE
     Route: 042
  3. VECTIBIX [Concomitant]
     Active Substance: PANITUMUMAB
     Dosage: DILUTION: IN 100 ML SALINE
     Route: 042
  4. FAULDLEUCO [Concomitant]
     Active Substance: LEUCOVORIN CALCIUM
     Route: 042
  5. FAULDFLUOR [Concomitant]
     Active Substance: FLUOROURACIL
     Dosage: DILUTION: INFUSER IN SALINE
  6. TEVAOXALI [Suspect]
     Active Substance: OXALIPLATIN
     Dosage: DATE OF THE LAST INFUSION BEFORE THE EVENT OCCURRED: 17-MAR-2020; IN 5% GLYCATED SERUM 500 ML
     Route: 042
  7. PALONOSETRON. [Concomitant]
     Active Substance: PALONOSETRON HYDROCHLORIDE
     Dosage: PRE-CHEMOTHERAPY DRUG
     Route: 042

REACTIONS (8)
  - Vomiting [Recovered/Resolved]
  - Pyrexia [Recovered/Resolved]
  - Chromaturia [Recovered/Resolved]
  - Nausea [Recovered/Resolved]
  - Back pain [Recovered/Resolved]
  - Acute kidney injury [Recovered/Resolved]
  - Haemoglobinuria [Recovered/Resolved]
  - Tremor [Recovered/Resolved]

NARRATIVE: CASE EVENT DATE: 20200317
